FAERS Safety Report 20591674 (Version 1)
Quarter: 2022Q1

REPORT INFORMATION
  Report Type: Spontaneous
  Country: US (occurrence: None)
  Receive Date: 20220314
  Receipt Date: 20220314
  Transmission Date: 20220424
  Serious: No
  Sender: FDA-Public Use
  Company Number: 2022A080268

PATIENT
  Sex: Male
  Weight: 117.9 kg

DRUGS (1)
  1. BUDESONIDE\FORMOTEROL\GLYCOPYRRONIUM [Suspect]
     Active Substance: BUDESONIDE\FORMOTEROL\GLYCOPYRRONIUM
     Indication: Chronic obstructive pulmonary disease
     Dosage: 160/9/4.8MCG
     Route: 055

REACTIONS (8)
  - Oxygen saturation decreased [Unknown]
  - Dyspnoea [Recovering/Resolving]
  - Insomnia [Recovering/Resolving]
  - Product dose omission issue [Unknown]
  - Wrong technique in product usage process [Unknown]
  - Intentional device misuse [Unknown]
  - Device delivery system issue [Unknown]
  - Device use issue [Unknown]
